FAERS Safety Report 17895258 (Version 1)
Quarter: 2020Q2

REPORT INFORMATION
  Report Type: Spontaneous
  Country: US (occurrence: US)
  Receive Date: 20200614
  Receipt Date: 20200614
  Transmission Date: 20200714
  Serious: No
  Sender: FDA-Public Use
  Company Number: None

PATIENT
  Age: 49 Year
  Sex: Female
  Weight: 74.25 kg

DRUGS (1)
  1. PUREBIOLOGUARD (HAND SANITIZER) [Suspect]
     Active Substance: HERBALS
     Indication: COVID-19 PROPHYLAXIS
     Route: 061
     Dates: start: 20200309, end: 20200327

REACTIONS (1)
  - Hypersensitivity [None]
